FAERS Safety Report 7132868-2 (Version None)
Quarter: 2010Q4

REPORT INFORMATION
  Report Type: 
  Country: None (occurrence: None)
  Receive Date: 20101202
  Receipt Date: 20101117
  Transmission Date: 20110411
  Serious: Yes (Other)
  Sender: FDA-Public Use
  Company Number: US-PFIZER INC-US-WYE-H18355410

PATIENT
  Sex: Male
  Weight: 87.528 kg

DRUGS (1)
  1. PRISTIQ [Suspect]
     Dosage: 50 MG, UNK
     Route: 048
     Dates: start: 20091125, end: 20100729

REACTIONS (2)
  - DRUG WITHDRAWAL SYNDROME [None]
  - PARAESTHESIA [None]
